FAERS Safety Report 19589183 (Version 1)
Quarter: 2021Q3

REPORT INFORMATION
  Report Type: Spontaneous
  Country: CN (occurrence: CN)
  Receive Date: 20210721
  Receipt Date: 20210721
  Transmission Date: 20211014
  Serious: Yes (Other)
  Sender: FDA-Public Use
  Company Number: CN-ROCHE-2871773

PATIENT
  Age: 43 Year
  Sex: Female

DRUGS (17)
  1. RITUXIMAB. [Suspect]
     Active Substance: RITUXIMAB
     Indication: DIFFUSE LARGE B-CELL LYMPHOMA
     Route: 065
     Dates: start: 201903, end: 201905
  2. CYCLOPHOSPHAMIDE. [Concomitant]
     Active Substance: CYCLOPHOSPHAMIDE
  3. PREDNISONE. [Concomitant]
     Active Substance: PREDNISONE
  4. CYTARABINE. [Concomitant]
     Active Substance: CYTARABINE
  5. IFOSFAMIDE. [Concomitant]
     Active Substance: IFOSFAMIDE
  6. CISPLATIN. [Concomitant]
     Active Substance: CISPLATIN
  7. ETOPOSIDE. [Concomitant]
     Active Substance: ETOPOSIDE
  8. RITUXIMAB. [Suspect]
     Active Substance: RITUXIMAB
     Route: 065
     Dates: start: 201907
  9. RITUXIMAB. [Suspect]
     Active Substance: RITUXIMAB
     Route: 065
     Dates: start: 202011, end: 202012
  10. DOXORUBICIN [Concomitant]
     Active Substance: DOXORUBICIN
  11. GEMCITABINE. [Concomitant]
     Active Substance: GEMCITABINE
  12. VINORELBINE [Concomitant]
     Active Substance: VINORELBINE TARTRATE
  13. LENALIDOMIDE [Concomitant]
     Active Substance: LENALIDOMIDE
  14. VINCRISTINE [Concomitant]
     Active Substance: VINCRISTINE
  15. DEXAMETHASONE. [Concomitant]
     Active Substance: DEXAMETHASONE
  16. POLATUZUMAB VEDOTIN. [Suspect]
     Active Substance: POLATUZUMAB VEDOTIN
     Indication: DIFFUSE LARGE B-CELL LYMPHOMA
     Route: 042
  17. RITUXIMAB. [Suspect]
     Active Substance: RITUXIMAB
     Route: 065
     Dates: start: 201909, end: 202001

REACTIONS (2)
  - Intestinal obstruction [Recovering/Resolving]
  - Neutropenia [Recovering/Resolving]

NARRATIVE: CASE EVENT DATE: 2021
